FAERS Safety Report 7357699-X (Version None)
Quarter: 2011Q1

REPORT INFORMATION
  Report Type: 
  Country: None (occurrence: None)
  Receive Date: 20110317
  Receipt Date: 20110308
  Transmission Date: 20110831
  Serious: Yes (Death, Life-Threatening)
  Sender: FDA-Public Use
  Company Number: DE-JNJFOC-980818-003013006

PATIENT
  Age: 56 Year
  Sex: Male

DRUGS (13)
  1. ALCOHOL [Suspect]
     Indication: PRODUCT USED FOR UNKNOWN INDICATION
     Route: 065
  2. DIXYRAZINE [Concomitant]
     Route: 048
     Dates: start: 19980303
  3. IBUPROFEN [Concomitant]
     Route: 030
     Dates: start: 19980302
  4. DIXYRAZINE [Concomitant]
     Route: 030
     Dates: start: 19980304
  5. DIAZEPAM [Concomitant]
     Route: 048
     Dates: start: 19980308
  6. HALOPERIDOL [Concomitant]
     Route: 054
     Dates: start: 19980307
  7. LORAZEPAM [Concomitant]
     Route: 030
     Dates: start: 19980305
  8. TRAMADOL HCL [Suspect]
     Indication: HUMERUS FRACTURE
     Route: 048
     Dates: start: 19980601
  9. KETOPROFEN [Concomitant]
     Route: 065
     Dates: start: 19980308
  10. ATENOLOL [Concomitant]
     Route: 065
     Dates: start: 19980308
  11. DIAZEPAM [Concomitant]
     Route: 030
     Dates: start: 19980308
  12. LORAZEPAM [Concomitant]
     Route: 030
     Dates: start: 19980305
  13. HALOPERIDOL [Concomitant]
     Route: 030
     Dates: start: 19980305

REACTIONS (11)
  - ARRHYTHMIA [None]
  - ALCOHOL WITHDRAWAL SYNDROME [None]
  - HYPERHIDROSIS [None]
  - CYANOSIS [None]
  - ATRIAL FLUTTER [None]
  - MUSCLE SPASMS [None]
  - ATRIAL TACHYCARDIA [None]
  - PYREXIA [None]
  - DELIRIUM [None]
  - TORTICOLLIS [None]
  - DRUG LEVEL INCREASED [None]
